FAERS Safety Report 9616927 (Version 1)
Quarter: 2013Q4

REPORT INFORMATION
  Report Type: Spontaneous
  Country: CN (occurrence: CN)
  Receive Date: 20131011
  Receipt Date: 20131011
  Transmission Date: 20140711
  Serious: Yes (Other)
  Sender: FDA-Public Use
  Company Number: CN-PFIZER INC-2013289775

PATIENT
  Sex: Male
  Weight: 65 kg

DRUGS (4)
  1. ZOLOFT [Suspect]
     Indication: MAJOR DEPRESSION
     Dosage: UNK
     Route: 048
  2. ZOLOFT [Suspect]
     Indication: BIPOLAR DISORDER
  3. OLANZAPINE [Concomitant]
     Indication: MAJOR DEPRESSION
     Dosage: UNK
     Route: 048
  4. OLANZAPINE [Concomitant]
     Indication: BIPOLAR DISORDER

REACTIONS (2)
  - VIIIth nerve injury [Unknown]
  - Tinnitus [Not Recovered/Not Resolved]
